FAERS Safety Report 5267940-5 (Version None)
Quarter: 2007Q1

REPORT INFORMATION
  Report Type: 
  Country: None (occurrence: None)
  Receive Date: 20061213
  Receipt Date: 20020107
  Transmission Date: 20070707
  Serious: No
  Sender: FDA-Public Use
  Company Number: 2002UW00228

PATIENT
  Age: 68 Year
  Sex: Female
  Weight: 56.6996 kg

DRUGS (2)
  1. TAMOXIFEN CITRATE [Suspect]
     Dosage: 10 MG BID PO
     Route: 048
     Dates: start: 19991001, end: 20011001
  2. TAMOXIFEN CITRATE [Suspect]
     Dosage: 20 MG BID PO
     Route: 048
     Dates: start: 20011001

REACTIONS (2)
  - ALOPECIA [None]
  - UTERINE POLYP [None]
